FAERS Safety Report 6591016-8 (Version None)
Quarter: 2010Q1

REPORT INFORMATION
  Report Type: 
  Country: None (occurrence: None)
  Receive Date: 20100216
  Receipt Date: 20090923
  Transmission Date: 20100710
  Serious: No
  Sender: FDA-Public Use
  Company Number: 2009-00620

PATIENT
  Age: 55 Year
  Sex: Female
  Weight: 74.8435 kg

DRUGS (11)
  1. ZICAM COLD REMEDY GEL SWABS [Suspect]
     Dosage: 3OR4 QD -ONGOING
     Dates: start: 20090916
  2. ZICAM COLD REMEDY CHEWABLES [Suspect]
     Dosage: AVG+1QD-OVER 7 DAYS TIME; 9/16/2009-AFTER 3 OR 4
     Dates: start: 20090916
  3. ZICAM COLD REMEDY PLUS LIQUI-LOZ [Suspect]
     Dosage: AVG=1/D-OVER 7 DAYS TIME; 09/16/2009-AFTER 3 OR 4
     Dates: start: 20090916
  4. ZICAM COLD REMEDY ORAL MIST [Suspect]
     Dosage: 4 OR 5 TIMES
  5. AMITIZA [Concomitant]
  6. TOPAMAX [Concomitant]
  7. MULTI-VITAMIN [Concomitant]
  8. VITAMIN E [Concomitant]
  9. OSTEO BI FLEX [Concomitant]
  10. ZOVIRAX [Concomitant]
  11. RED WINE EXTRACT [Concomitant]

REACTIONS (1)
  - AGEUSIA [None]
